FAERS Safety Report 15545718 (Version 1)
Quarter: 2018Q4

REPORT INFORMATION
  Report Type: Spontaneous
  Country: US (occurrence: US)
  Receive Date: 20181017
  Receipt Date: 20181017
  Transmission Date: 20190205
  Serious: Yes (Other)
  Sender: FDA-Public Use
  Company Number: None

PATIENT
  Age: 75 Year
  Sex: Female
  Weight: 58.97 kg

DRUGS (28)
  1. CHOLINE [Concomitant]
     Active Substance: CHOLINE
  2. LYSINE [Concomitant]
     Active Substance: LYSINE
  3. TIRASEN [Concomitant]
  4. VITAMIN C [Concomitant]
     Active Substance: ASCORBIC ACID
  5. VITAMIN D [Concomitant]
     Active Substance: CHOLECALCIFEROL
  6. ALPHALIPOICACID [Concomitant]
  7. CHROMAX [Concomitant]
  8. ESTRIGEN [Concomitant]
  9. VITAMIN D [Concomitant]
     Active Substance: CHOLECALCIFEROL
  10. ZOLPIDEM [Concomitant]
     Active Substance: ZOLPIDEM\ZOLPIDEM TARTRATE
  11. RENEWGLOW [Concomitant]
  12. TYLENOL [Concomitant]
     Active Substance: ACETAMINOPHEN
  13. BIOTIN [Concomitant]
     Active Substance: BIOTIN
  14. CURCUMIN POWDER [Concomitant]
  15. DIAMOX SEQUELS [Concomitant]
     Active Substance: ACETAZOLAMIDE
  16. D-RIBOS [Concomitant]
  17. GINKP [Concomitant]
  18. COMBIGAN [Suspect]
     Active Substance: BRIMONIDINE TARTRATE\TIMOLOL MALEATE
     Indication: OCULAR HYPERTENSION
     Dosage: OTHER FREQUENCY:3 TIMES A WEEK ;EYE DROP LEFT EYE?
     Dates: start: 20180117, end: 20180820
  19. MAGNESIUM [Concomitant]
     Active Substance: MAGNESIUM
  20. NAC [Concomitant]
  21. TIMOLOL. [Suspect]
     Active Substance: TIMOLOL
     Indication: OCULAR HYPERTENSION
     Dosage: 1 DROP, 2XDAY, EYEDROP LEFT EYE
     Dates: start: 20180101
  22. CHOLTEZETOSAL LOTION [Concomitant]
  23. ECHINACEA [Concomitant]
     Active Substance: ECHINACEA, UNSPECIFIED
  24. VITAMIN E [Suspect]
     Active Substance: .ALPHA.-TOCOPHEROL
  25. ASPIRIN. [Concomitant]
     Active Substance: ASPIRIN
  26. GLUADAMEEN [Concomitant]
  27. METATONIN [Concomitant]
  28. PROGESTRONE [Concomitant]

REACTIONS (1)
  - Alopecia [None]

NARRATIVE: CASE EVENT DATE: 20180507
